FAERS Safety Report 9382847 (Version 3)
Quarter: 2013Q3

REPORT INFORMATION
  Report Type: Spontaneous
  Country: BR (occurrence: BR)
  Receive Date: 20130703
  Receipt Date: 20130717
  Transmission Date: 20140515
  Serious: Yes (Other)
  Sender: FDA-Public Use
  Company Number: BR-GILEAD-2013-0078524

PATIENT
  Sex: Male

DRUGS (2)
  1. HEPSERA [Suspect]
     Indication: CHRONIC HEPATITIS
     Dosage: UNK
  2. LAMIVUDINE TABLETS [Concomitant]

REACTIONS (1)
  - Myasthenia gravis [Not Recovered/Not Resolved]
